FAERS Safety Report 16468679 (Version 1)
Quarter: 2019Q2

REPORT INFORMATION
  Report Type: Spontaneous
  Country: BG (occurrence: BG)
  Receive Date: 20190624
  Receipt Date: 20190624
  Transmission Date: 20190711
  Serious: Yes (Other)
  Sender: FDA-Public Use
  Company Number: BG-ROCHE-2342240

PATIENT
  Age: 75 Year
  Sex: Female

DRUGS (20)
  1. ANALGINE [Concomitant]
  2. GLUCOSE [Concomitant]
     Active Substance: DEXTROSE
     Dosage: 500 ML
     Route: 065
  3. DICYNONE [Concomitant]
     Active Substance: ETHAMSYLATE
     Indication: PRODUCT USED FOR UNKNOWN INDICATION
     Dosage: X 1 AMPOULE
     Route: 065
  4. PARACETAMOL [Concomitant]
     Active Substance: ACETAMINOPHEN
     Indication: PRODUCT USED FOR UNKNOWN INDICATION
     Dosage: X 1 VIAL
     Route: 065
  5. ACTILYSE [Suspect]
     Active Substance: ALTEPLASE
     Indication: EMBOLIC CEREBRAL INFARCTION
     Route: 065
     Dates: start: 20170216, end: 20170216
  6. ZIBOR [Concomitant]
     Indication: PRODUCT USED FOR UNKNOWN INDICATION
     Route: 065
  7. MANNITOL. [Concomitant]
     Active Substance: MANNITOL
     Indication: PRODUCT USED FOR UNKNOWN INDICATION
     Dosage: 10% 2#250 ML
     Route: 065
  8. TRIFAS [TORASEMIDE] [Concomitant]
     Indication: PRODUCT USED FOR UNKNOWN INDICATION
     Dosage: X 1 TABLET IN THE MORNING (IN THE MORNING)
     Route: 065
  9. SOMAZINA [CITICOLINE] [Concomitant]
     Indication: PRODUCT USED FOR UNKNOWN INDICATION
  10. DIROTON [Concomitant]
     Active Substance: LISINOPRIL
     Indication: PRODUCT USED FOR UNKNOWN INDICATION
     Dosage: 1 TABLET (IN THE MORNING)
     Route: 065
  11. SORTIS [Concomitant]
     Active Substance: ATORVASTATIN
  12. CHLOPHAZOLIN [Concomitant]
     Active Substance: CLONIDINE HYDROCHLORIDE
  13. LACTULOSE. [Concomitant]
     Active Substance: LACTULOSE
  14. INSULINE ACTRAPID [Concomitant]
     Dosage: 4 U
     Route: 065
  15. ADRENALINE [EPINEPHRINE] [Concomitant]
     Active Substance: EPINEPHRINE
     Route: 065
  16. VICETIN [Concomitant]
     Indication: PRODUCT USED FOR UNKNOWN INDICATION
     Dosage: X 1 AMPOULE
     Route: 065
  17. BISOGAMMA [Concomitant]
     Active Substance: BISOPROLOL FUMARATE
     Indication: PRODUCT USED FOR UNKNOWN INDICATION
     Dosage: 1 TABLET IN THE MORNING (5 MG,IN THE MORNING)
     Route: 065
  18. MEDAXONE [Concomitant]
  19. SODIUM CHLORIDE. [Concomitant]
     Active Substance: SODIUM CHLORIDE
     Indication: PRODUCT USED FOR UNKNOWN INDICATION
     Route: 065
  20. PROBITOR (BULGARIA) [Concomitant]
     Indication: PRODUCT USED FOR UNKNOWN INDICATION
     Dosage: X 1 VIAL
     Route: 065

REACTIONS (1)
  - Hemiplegia [Not Recovered/Not Resolved]
